FAERS Safety Report 4929108-9 (Version None)
Quarter: 2006Q1

REPORT INFORMATION
  Report Type: 
  Country: None (occurrence: None)
  Receive Date: 20060301
  Receipt Date: 20050727
  Transmission Date: 20060701
  Serious: Yes (Hospitalization, Disabling, Other)
  Sender: FDA-Public Use
  Company Number: US-MERCK-0507USA04261

PATIENT
  Age: 74 Year
  Sex: Male
  Weight: 62 kg

DRUGS (3)
  1. VIOXX [Suspect]
     Indication: OSTEOARTHRITIS
     Route: 048
     Dates: start: 19990611, end: 20001213
  2. VIOXX [Suspect]
     Route: 048
     Dates: start: 20040113, end: 20040930
  3. [THERAPY UNSPECIFIED] [Concomitant]
     Route: 065

REACTIONS (14)
  - ACUTE PULMONARY OEDEMA [None]
  - ATRIAL FIBRILLATION [None]
  - BRONCHOSPASM [None]
  - CEREBRAL INFARCTION [None]
  - CEREBROVASCULAR ACCIDENT [None]
  - CONFUSION POSTOPERATIVE [None]
  - CORONARY ARTERY DISEASE [None]
  - DIZZINESS [None]
  - ESSENTIAL HYPERTENSION [None]
  - HYPERHIDROSIS [None]
  - MITRAL VALVE INCOMPETENCE [None]
  - PALLOR [None]
  - PROSTATE CANCER [None]
  - VENTRICULAR DYSFUNCTION [None]
